FAERS Safety Report 11045197 (Version 1)
Quarter: 2015Q2

REPORT INFORMATION
  Report Type: Spontaneous
  Country: DE (occurrence: DE)
  Receive Date: 20150417
  Receipt Date: 20150417
  Transmission Date: 20150821
  Serious: Yes (Other)
  Sender: FDA-Public Use
  Company Number: PHHY2015DE033306

PATIENT
  Age: 66 Year
  Sex: Female
  Weight: 51 kg

DRUGS (2)
  1. RASILEZ [Suspect]
     Active Substance: ALISKIREN
     Dosage: 150 MG, QD
     Route: 048
     Dates: start: 201101, end: 20150206
  2. RASILEZ [Suspect]
     Active Substance: ALISKIREN
     Indication: HYPERTENSION
     Dosage: 300 MG, QD
     Route: 048
     Dates: start: 200710, end: 201012

REACTIONS (7)
  - Faecal elastase concentration decreased [Recovered/Resolved with Sequelae]
  - Sleep disorder [Recovered/Resolved]
  - Chronic gastritis [Recovered/Resolved with Sequelae]
  - Constipation [Recovered/Resolved]
  - Abdominal discomfort [Recovered/Resolved]
  - Pain [Recovered/Resolved]
  - Pancreatic insufficiency [Recovered/Resolved with Sequelae]

NARRATIVE: CASE EVENT DATE: 2012
